FAERS Safety Report 6505384-6 (Version None)
Quarter: 2009Q4

REPORT INFORMATION
  Report Type: 
  Country: None (occurrence: None)
  Receive Date: 20091218
  Receipt Date: 20091206
  Transmission Date: 20100525
  Serious: Yes (Hospitalization, Other)
  Sender: FDA-Public Use
  Company Number: DE-MYLANLABS-2009S1021026

PATIENT
  Age: 43 Year
  Sex: Female
  Weight: 57 kg

DRUGS (4)
  1. MIRTAZAPIN DURA [Suspect]
     Indication: INTENTIONAL OVERDOSE
     Route: 048
     Dates: start: 20091205, end: 20091205
  2. TILIDIN [Suspect]
     Indication: INTENTIONAL OVERDOSE
     Route: 048
     Dates: start: 20091205, end: 20091205
  3. VOLTAREN [Suspect]
     Indication: INTENTIONAL OVERDOSE
     Route: 048
     Dates: start: 20091205, end: 20091205
  4. ALCOHOL [Suspect]
     Indication: INTENTIONAL OVERDOSE
     Route: 048
     Dates: start: 20091205, end: 20091205

REACTIONS (6)
  - CRYING [None]
  - FATIGUE [None]
  - INTENTIONAL OVERDOSE [None]
  - RESTLESSNESS [None]
  - SUICIDE ATTEMPT [None]
  - VOMITING [None]
